FAERS Safety Report 10384447 (Version 2)
Quarter: 2014Q3

REPORT INFORMATION
  Report Type: Spontaneous
  Country: DE (occurrence: DE)
  Receive Date: 20140814
  Receipt Date: 20140912
  Transmission Date: 20150326
  Serious: Yes (Other)
  Sender: FDA-Public Use
  Company Number: US-ASTRAZENECA-2014SE59576

PATIENT
  Age: 81 Year
  Sex: Female

DRUGS (4)
  1. MARCUMAR [Suspect]
     Active Substance: PHENPROCOUMON
  2. CIPRALEX [Concomitant]
     Active Substance: ESCITALOPRAM OXALATE
  3. AMLODIPINE BESILATE [Suspect]
     Active Substance: AMLODIPINE BESYLATE
  4. BELOC ZOC COMP [Suspect]
     Active Substance: HYDROCHLOROTHIAZIDE\METOPROLOL SUCCINATE
     Route: 048

REACTIONS (2)
  - Atrial flutter [Unknown]
  - Cardiac failure [Unknown]
